FAERS Safety Report 5903513-6 (Version None)
Quarter: 2008Q3

REPORT INFORMATION
  Report Type: 
  Country: None (occurrence: None)
  Receive Date: 20080930
  Receipt Date: 20080924
  Transmission Date: 20090109
  Serious: Yes (Death, Hospitalization, Other)
  Sender: FDA-Public Use
  Company Number: ZA-CELGENEUS-143-20785-08091448

PATIENT
  Sex: Male

DRUGS (2)
  1. THALIDOMIDE [Suspect]
     Indication: DRUG USE FOR UNKNOWN INDICATION
     Route: 048
     Dates: start: 20080809, end: 20080823
  2. AMLUCK [Concomitant]
     Indication: DRUG USE FOR UNKNOWN INDICATION
     Route: 065

REACTIONS (7)
  - CELLULITIS [None]
  - DEATH [None]
  - DISORIENTATION [None]
  - INFECTION [None]
  - PAIN [None]
  - RENAL FAILURE [None]
  - SEPTIC SHOCK [None]
